FAERS Safety Report 5606119-1 (Version None)
Quarter: 2008Q1

REPORT INFORMATION
  Report Type: 
  Country: None (occurrence: None)
  Receive Date: 20080123
  Receipt Date: 20080111
  Transmission Date: 20080703
  Serious: Yes (Hospitalization)
  Sender: FDA-Public Use
  Company Number: 100#03#2008-00066

PATIENT
  Age: 41 Year
  Sex: Female

DRUGS (1)
  1. CIPROFLOXACIN [Suspect]
     Indication: URINARY TRACT INFECTION
     Dosage: 500 MG TWICE DAILY ORAL
     Route: 048
     Dates: start: 20070110, end: 20070114

REACTIONS (3)
  - ARTHRITIS REACTIVE [None]
  - BLINDNESS TRANSIENT [None]
  - DRUG HYPERSENSITIVITY [None]
